FAERS Safety Report 14262752 (Version 1)
Quarter: 2017Q4

REPORT INFORMATION
  Report Type: Spontaneous
  Country: US (occurrence: US)
  Receive Date: 20171208
  Receipt Date: 20171208
  Transmission Date: 20180321
  Serious: No
  Sender: FDA-Public Use
  Company Number: US-PERRIGO-17US003717

PATIENT
  Age: 82 Year
  Sex: Female
  Weight: 48.98 kg

DRUGS (1)
  1. CIMETIDINE [Suspect]
     Active Substance: CIMETIDINE
     Indication: URTICARIA
     Dosage: 200 MG, BID
     Route: 048
     Dates: start: 20170428

REACTIONS (1)
  - Off label use [Not Recovered/Not Resolved]

NARRATIVE: CASE EVENT DATE: 20170428
